FAERS Safety Report 23150124 (Version 1)
Quarter: 2023Q4

REPORT INFORMATION
  Report Type: Spontaneous
  Country: US (occurrence: None)
  Receive Date: 20231106
  Receipt Date: 20231106
  Transmission Date: 20240110
  Serious: Yes (Hospitalization)
  Sender: FDA-Public Use
  Company Number: None

PATIENT
  Age: 11 Year
  Sex: Male

DRUGS (6)
  1. CREON [Suspect]
     Active Substance: PANCRELIPASE AMYLASE\PANCRELIPASE LIPASE\PANCRELIPASE PROTEASE
     Indication: Cystic fibrosis
     Dosage: OTHER STRENGTH : 24000-76000 UNIT ;?OTHER QUANTITY : 24000-76000 UNIT;?GIVE 3 CAPSULES BY MOUTH THRE
     Route: 048
     Dates: start: 20220401
  2. CETIRIZINE CHW 5MG [Concomitant]
  3. COMPLETE FORM D3000 CHEW ORANGE [Concomitant]
  4. PARI LC PLUS NEB SET [Concomitant]
  5. PEDIASURE - CHOCOLATE (5688=1CASE) [Concomitant]
  6. SOD CHL 7%4ML 4=1 NEB [Concomitant]

REACTIONS (2)
  - Bacterial infection [None]
  - Respiratory tract congestion [None]

NARRATIVE: CASE EVENT DATE: 20231023
